FAERS Safety Report 8862480 (Version 1)
Quarter: 2012Q4

REPORT INFORMATION
  Report Type: 
  Country: US (occurrence: US)
  Receive Date: 20121026
  Receipt Date: 20121026
  Transmission Date: 20130627
  Serious: No
  Sender: FDA-Public Use
  Company Number: US-ALLERGAN-1205500US

PATIENT
  Age: 83 Year
  Sex: Female

DRUGS (6)
  1. ALPHAGAN P [Suspect]
     Indication: IOP INCREASED
     Dosage: 8 Gtt, bid
     Route: 047
     Dates: start: 20120416
  2. NOVOLIN                            /00030501/ [Concomitant]
     Indication: DIABETES
     Dosage: UNK
     Route: 058
  3. GLUCOPHAGE                         /00082701/ [Concomitant]
     Indication: DIABETES
     Dosage: UNK
     Route: 048
  4. TOPROL [Concomitant]
     Indication: HYPERTENSION
     Dosage: UNK
     Route: 048
  5. NORVASC                            /00972401/ [Concomitant]
     Indication: HYPERTENSION
     Dosage: UNK
     Route: 048
  6. VASOTEC                            /00574902/ [Concomitant]
     Indication: HYPERTENSION
     Dosage: UNK
     Route: 048

REACTIONS (8)
  - Incorrect dose administered [Unknown]
  - Asthenia [Recovered/Resolved]
  - Fatigue [Recovered/Resolved]
  - Visual impairment [Recovered/Resolved]
  - Blood pressure increased [Recovered/Resolved]
  - Somnolence [Recovered/Resolved]
  - Dizziness [Recovered/Resolved]
  - Malaise [Recovered/Resolved]
